FAERS Safety Report 15957886 (Version 1)
Quarter: 2019Q1

REPORT INFORMATION
  Report Type: Spontaneous
  Country: FR (occurrence: FR)
  Receive Date: 20190213
  Receipt Date: 20190213
  Transmission Date: 20190417
  Serious: Yes (Other)
  Sender: FDA-Public Use
  Company Number: FR-PFIZER INC-2019057421

PATIENT
  Age: 58 Year
  Sex: Male
  Weight: 76 kg

DRUGS (5)
  1. BIRODOGYL [Suspect]
     Active Substance: METRONIDAZOLE\SPIRAMYCIN
     Indication: ANTIBIOTIC PROPHYLAXIS
     Dosage: UNK
     Route: 048
     Dates: start: 20180625, end: 20180626
  2. ADVIL [Suspect]
     Active Substance: IBUPROFEN
     Dosage: 1 DF, SINGLE
     Route: 048
     Dates: start: 20180626, end: 20180626
  3. DOLIPRANE [Suspect]
     Active Substance: ACETAMINOPHEN
     Indication: PAIN
     Dosage: UNK
     Route: 048
     Dates: start: 20180625, end: 20180626
  4. ULTRALEVADURA [Suspect]
     Active Substance: SACCHAROMYCES CEREVISIAE
     Indication: DIARRHOEA
     Dosage: UNK
     Route: 048
     Dates: start: 20180625, end: 20180626
  5. ELUDRIL [CHLOROBUTANOL;CHLOROFORM] [Suspect]
     Active Substance: CHLOROBUTANOL\CHLOROFORM
     Indication: DENTAL CARE
     Dosage: UNK
     Route: 048
     Dates: start: 20180625, end: 20180626

REACTIONS (9)
  - Pyrexia [Recovered/Resolved]
  - Cholestasis [Recovered/Resolved]
  - Vomiting [Recovered/Resolved]
  - Eosinophilia [Recovered/Resolved]
  - Hepatocellular injury [Recovered/Resolved]
  - Rash pustular [Recovered/Resolved]
  - Myalgia [Recovered/Resolved]
  - Rash maculo-papular [Recovered/Resolved]
  - Neutrophil count increased [Recovered/Resolved]

NARRATIVE: CASE EVENT DATE: 20180625
